FAERS Safety Report 22054865 (Version 4)
Quarter: 2023Q2

REPORT INFORMATION
  Report Type: Spontaneous
  Country: US (occurrence: US)
  Receive Date: 20230302
  Receipt Date: 20230508
  Transmission Date: 20230721
  Serious: Yes (Hospitalization, Other)
  Sender: FDA-Public Use
  Company Number: US-PFIZER INC-PV202300039023

PATIENT
  Age: 81 Year
  Sex: Female
  Weight: 68.027 kg

DRUGS (8)
  1. TOVIAZ [Suspect]
     Active Substance: FESOTERODINE FUMARATE
     Indication: Urinary incontinence
     Dosage: 8 MQM Q.D.
     Dates: end: 202209
  2. LEVOTHYROXINE [Concomitant]
     Active Substance: LEVOTHYROXINE
     Dosage: 7 UG FOR 30YEARS +
  3. COREG [Concomitant]
     Active Substance: CARVEDILOL
     Dosage: 1.25 MG  FOR 20 YEARS
     Dates: end: 202211
  4. ATORVASTATIN [Concomitant]
     Active Substance: ATORVASTATIN
     Dosage: 20 G FOR 20 YEARS
  5. CALTRATE D [CALCIUM;COLECALCIFEROL] [Concomitant]
     Dosage: UNK  DOSE FOR 20 YEARS
  6. PREMARIN [Concomitant]
     Active Substance: ESTROGENS, CONJUGATED
     Dosage: UNK  DOSE FOR 20 YEARS
  7. ASPIRIN [Concomitant]
     Active Substance: ASPIRIN
     Dosage: 81 MG FOR 15 YEARS
  8. BIOTIN [Concomitant]
     Active Substance: BIOTIN
     Dosage: UNK

REACTIONS (5)
  - Urinary retention [Recovered/Resolved]
  - Renal haemorrhage [Not Recovered/Not Resolved]
  - Illness [Recovered/Resolved]
  - Bladder disorder [Recovered/Resolved]
  - Urine abnormality [Unknown]

NARRATIVE: CASE EVENT DATE: 20220801
